FAERS Safety Report 7740327-9 (Version None)
Quarter: 2011Q3

REPORT INFORMATION
  Report Type: 
  Country: None (occurrence: None)
  Receive Date: 20110909
  Receipt Date: 20110905
  Transmission Date: 20111222
  Serious: Yes (Other)
  Sender: FDA-Public Use
  Company Number: GB-PFIZER INC-2011161599

PATIENT
  Age: 46 Year
  Sex: Female
  Weight: 52.8 kg

DRUGS (5)
  1. VENTOLIN HFA [Concomitant]
     Indication: WHEEZING
     Dosage: 2 DF, AS NEEDED
     Route: 055
  2. DEPO-PROVERA [Concomitant]
     Indication: CONTRACEPTION
     Dosage: 1 DF, EVERY 3 MONTHS
     Route: 030
     Dates: start: 20101008
  3. AMOROLFINE [Concomitant]
     Indication: ONYCHOMYCOSIS
     Dosage: 1 DF, WEEKLY
     Route: 061
     Dates: start: 20101102, end: 20110125
  4. TERBINAFINE [Concomitant]
     Indication: ONYCHOMYCOSIS
     Dosage: 250 MG, 1X/DAY
     Route: 048
     Dates: start: 20110323
  5. VARENICLINE TARTRATE [Suspect]
     Indication: SMOKING CESSATION THERAPY
     Dosage: 1 MG, 2X/DAY
     Route: 048
     Dates: start: 20110420, end: 20110603

REACTIONS (7)
  - MOUTH HAEMORRHAGE [None]
  - FALL [None]
  - CONVULSION [None]
  - MUSCLE RIGIDITY [None]
  - CONFUSIONAL STATE [None]
  - HEAD INJURY [None]
  - DYSKINESIA [None]
